FAERS Safety Report 22375136 (Version 1)
Quarter: 2023Q2

REPORT INFORMATION
  Report Type: Spontaneous
  Country: US (occurrence: US)
  Receive Date: 20230527
  Receipt Date: 20230527
  Transmission Date: 20230721
  Serious: No
  Sender: FDA-Public Use
  Company Number: US-CADILA HEALTHCARE LIMITED-US-ZYDUS-086482

PATIENT

DRUGS (3)
  1. BOSENTAN [Suspect]
     Active Substance: BOSENTAN
     Indication: Pulmonary arterial hypertension
     Dosage: 125 MILLIGRAM, BID
     Route: 048
     Dates: start: 202207
  2. UPTRAVI [Suspect]
     Active Substance: SELEXIPAG
     Indication: Product used for unknown indication
     Dosage: 1600 MICROGRAM, BID
     Route: 065
     Dates: end: 2022
  3. UPTRAVI [Suspect]
     Active Substance: SELEXIPAG
     Dosage: 1000 MICROGRAM, BID
     Route: 065
     Dates: start: 2022

REACTIONS (1)
  - Headache [Unknown]

NARRATIVE: CASE EVENT DATE: 20220101
